FAERS Safety Report 4687254-1 (Version None)
Quarter: 2005Q2

REPORT INFORMATION
  Report Type: 
  Country: None (occurrence: None)
  Receive Date: 20050608
  Receipt Date: 20050526
  Transmission Date: 20051028
  Serious: Yes (Death)
  Sender: FDA-Public Use
  Company Number: 2005SP000799

PATIENT
  Age: 26 Year
  Sex: Female
  Weight: 68.0396 kg

DRUGS (7)
  1. LUNESTA [Suspect]
     Indication: INSOMNIA
     Dosage: 1X; ORAL
     Route: 048
     Dates: start: 20050511, end: 20050511
  2. SOMA [Suspect]
     Indication: NECK INJURY
     Dosage: 1X; ORAL
     Route: 048
     Dates: start: 20050511, end: 20050511
  3. SOMA [Suspect]
     Indication: WHIPLASH INJURY
     Dosage: 1X; ORAL
     Route: 048
     Dates: start: 20050511, end: 20050511
  4. AMBIEN [Concomitant]
  5. HALCION [Concomitant]
  6. DEPAKOTE [Concomitant]
  7. NEURONTIN [Concomitant]

REACTIONS (3)
  - ACCIDENTAL DEATH [None]
  - MULTIPLE DRUG OVERDOSE [None]
  - TREATMENT NONCOMPLIANCE [None]
